FAERS Safety Report 10539466 (Version 3)
Quarter: 2015Q1

REPORT INFORMATION
  Report Type: Report from Study
  Country: US (occurrence: US)
  Receive Date: 20141023
  Receipt Date: 20150317
  Transmission Date: 20150720
  Serious: Yes (Hospitalization)
  Sender: FDA-Public Use
  Company Number: US-MYLANLABS-2014M1008019

PATIENT
  Age: 75 Year
  Sex: Male
  Weight: 77.55 kg

DRUGS (7)
  1. DACOMITINIB [Suspect]
     Active Substance: DACOMITINIB
     Indication: NON-SMALL CELL LUNG CANCER
     Dosage: UNK
     Route: 048
     Dates: start: 20130606, end: 20130613
  2. VSL#3 [Suspect]
     Active Substance: PROBIOTICS NOS
     Indication: NON-SMALL CELL LUNG CANCER
     Dosage: UNK, QD
  3. PHENERGAN [Concomitant]
     Active Substance: PROMETHAZINE HYDROCHLORIDE
     Dosage: UNK
     Route: 048
  4. AMBIEN [Concomitant]
     Active Substance: ZOLPIDEM TARTRATE
     Dosage: UNK
     Route: 048
  5. ATIVAN [Concomitant]
     Active Substance: LORAZEPAM
     Dosage: UNK
     Route: 048
  6. ALCLOMETASONE DIPROPIONATE. [Suspect]
     Active Substance: ALCLOMETASONE DIPROPIONATE
     Indication: NON-SMALL CELL LUNG CANCER
     Dosage: UNK UNK, QD
     Route: 061
     Dates: start: 20130606, end: 20130613
  7. DOXYCYCLINE. [Suspect]
     Active Substance: DOXYCYCLINE
     Indication: NON-SMALL CELL LUNG CANCER
     Dosage: UNK, BID
     Route: 048
     Dates: start: 20130606, end: 20130613

REACTIONS (2)
  - Rib fracture [Recovering/Resolving]
  - Constipation [Recovered/Resolved]

NARRATIVE: CASE EVENT DATE: 20130613
